FAERS Safety Report 9345199 (Version 3)
Quarter: 2014Q1

REPORT INFORMATION
  Report Type: Spontaneous
  Country: CA (occurrence: CA)
  Receive Date: 20130612
  Receipt Date: 20140108
  Transmission Date: 20141002
  Serious: Yes (Death, Hospitalization, Other)
  Sender: FDA-Public Use
  Company Number: CA-GILEAD-2013-0077030

PATIENT
  Age: 80 Year
  Sex: Female

DRUGS (13)
  1. AMBRISENTAN [Suspect]
     Indication: PULMONARY ARTERIAL HYPERTENSION
     Dosage: 10 MG, QD
     Route: 048
     Dates: start: 20101021
  2. ADCIRCA [Concomitant]
  3. ALENDRONATE SODIUM [Concomitant]
  4. APO-FERROUS GLUCONATE [Concomitant]
  5. PMS-LEFLUNOMIDE [Concomitant]
  6. APO FUROSEMIDE [Concomitant]
  7. PANTOPRAZOLE TEVA [Concomitant]
  8. BEVACIZUMAB [Concomitant]
  9. WARFARIN [Concomitant]
  10. MULTIVITAMINS [Concomitant]
  11. VITAMIN D NOS [Concomitant]
  12. TYLENOL EXTRA STRENGTH [Concomitant]
  13. OXYGEN [Concomitant]

REACTIONS (3)
  - Death [Fatal]
  - Pneumonia [Unknown]
  - Dyspnoea [Not Recovered/Not Resolved]
